FAERS Safety Report 18326230 (Version 1)
Quarter: 2020Q3

REPORT INFORMATION
  Report Type: Spontaneous
  Country: US (occurrence: US)
  Receive Date: 20200929
  Receipt Date: 20200929
  Transmission Date: 20201103
  Serious: Yes (Other)
  Sender: FDA-Public Use
  Company Number: US-TEVA-2020-US-1832416

PATIENT
  Sex: Male

DRUGS (1)
  1. LEVALBUTEROL TARTRATE HFA INHALER [Suspect]
     Active Substance: LEVALBUTEROL TARTRATE
     Route: 065

REACTIONS (2)
  - Product contamination physical [Unknown]
  - Choking [Unknown]
